FAERS Safety Report 16973940 (Version 2)
Quarter: 2020Q1

REPORT INFORMATION
  Report Type: Spontaneous
  Country: DE (occurrence: DE)
  Receive Date: 20191030
  Receipt Date: 20200108
  Transmission Date: 20200409
  Serious: Yes (Life-Threatening, Hospitalization, Other)
  Sender: FDA-Public Use
  Company Number: DE-ACCORD-159230

PATIENT
  Age: 91 Year
  Sex: Male
  Weight: 75 kg

DRUGS (9)
  1. FEBUXOSTAT. [Suspect]
     Active Substance: FEBUXOSTAT
     Indication: HYPERURICAEMIA
     Dosage: 80 MG/ 2 DAYS
     Route: 048
  2. NITRENDIPINE [Concomitant]
     Active Substance: NITRENDIPINE
     Dosage: DAILY DOSE: 10 MG MILLGRAM(S) EVERY DAYS 2 SEPARATED DOSES
  3. ROSUVASTATIN. [Suspect]
     Active Substance: ROSUVASTATIN
     Indication: HYPERCHOLESTEROLAEMIA
     Route: 048
  4. NEBIVOLOL. [Concomitant]
     Active Substance: NEBIVOLOL
     Dosage: DAILY DOSE: 1.25 MG MILLGRAM(S) EVERY DAYS
  5. ASPIRIN. [Concomitant]
     Active Substance: ASPIRIN
     Dosage: DAILY DOSE: 100 MG MILLGRAM(S) EVERY DAYS
  6. TELMISARTAN. [Concomitant]
     Active Substance: TELMISARTAN
     Dosage: DAILY DOSE: 80 MG MILLGRAM(S) EVERY DAYS 2 SEPARATED DOSES
  7. IBUPROFEN. [Concomitant]
     Active Substance: IBUPROFEN
     Dosage: BEI BEDARF
  8. ESOMEPRAZOLE. [Concomitant]
     Active Substance: ESOMEPRAZOLE MAGNESIUM
     Dosage: DAILY DOSE: 20 MG MILLGRAM(S) EVERY DAYS
  9. EZETIMIBE. [Concomitant]
     Active Substance: EZETIMIBE
     Dosage: DAILY DOSE: 10 MG MILLGRAM(S) EVERY DAYS

REACTIONS (6)
  - Myalgia [Recovering/Resolving]
  - Blood uric acid decreased [Recovering/Resolving]
  - Blood creatine phosphokinase increased [Recovering/Resolving]
  - Muscular weakness [Recovering/Resolving]
  - Blood creatinine increased [Recovering/Resolving]
  - Renal failure [Recovering/Resolving]

NARRATIVE: CASE EVENT DATE: 2019
